FAERS Safety Report 9096367 (Version 3)
Quarter: 2014Q1

REPORT INFORMATION
  Report Type: Spontaneous
  Country: BR (occurrence: BR)
  Receive Date: 20130207
  Receipt Date: 20140311
  Transmission Date: 20141002
  Serious: Yes (Other)
  Sender: FDA-Public Use
  Company Number: BR-SANOFI-AVENTIS-2013SA006157

PATIENT
  Age: 30 Year
  Sex: Female
  Weight: 45 kg

DRUGS (13)
  1. ARAVA [Suspect]
     Indication: JUVENILE IDIOPATHIC ARTHRITIS
     Route: 048
     Dates: start: 2011
  2. ARAVA [Interacting]
     Indication: JUVENILE IDIOPATHIC ARTHRITIS
     Route: 048
  3. ARAVA [Interacting]
     Indication: JUVENILE IDIOPATHIC ARTHRITIS
     Route: 048
     Dates: start: 201210, end: 201301
  4. CERAZETTE [Interacting]
     Indication: PRODUCT USED FOR UNKNOWN INDICATION
     Route: 048
     Dates: start: 20130124
  5. CERAZETTE [Interacting]
     Indication: PRODUCT USED FOR UNKNOWN INDICATION
     Route: 065
  6. PREDNISONE [Concomitant]
  7. INDOCID [Concomitant]
  8. METHOTREXATE [Concomitant]
  9. CHOLECALCIFEROL [Concomitant]
  10. AMITRIPTYLINE [Concomitant]
  11. HYDROXYZINE [Concomitant]
  12. CALCIUM CARBONATE/COLECALCIFEROL [Concomitant]
  13. RISEDRONATE SODIUM [Concomitant]

REACTIONS (18)
  - Ovarian cyst [Recovered/Resolved]
  - Gastrointestinal infection [Recovered/Resolved]
  - Abdominal pain [Recovered/Resolved]
  - Abdominal pain [Recovered/Resolved]
  - Pyrexia [Recovered/Resolved]
  - Tremor [Recovered/Resolved]
  - Hypoaesthesia [Recovered/Resolved]
  - Vomiting [Recovered/Resolved]
  - Diarrhoea [Recovered/Resolved]
  - Metrorrhagia [Recovered/Resolved]
  - Drug interaction [Unknown]
  - Endometriosis [Recovered/Resolved]
  - Menorrhagia [Recovered/Resolved]
  - Abdominal pain [Recovered/Resolved]
  - Alopecia [Recovering/Resolving]
  - Weight decreased [Recovered/Resolved]
  - Abdominal pain [Recovered/Resolved]
  - Nail disorder [Unknown]
